FAERS Safety Report 6749858-1 (Version None)
Quarter: 2010Q2

REPORT INFORMATION
  Report Type: 
  Country: None (occurrence: None)
  Receive Date: 20100527
  Receipt Date: 20100527
  Transmission Date: 20101027
  Serious: Yes (Life-Threatening, Hospitalization, Other)
  Sender: FDA-Public Use
  Company Number: None

PATIENT
  Age: 53 Year
  Sex: Female
  Weight: 58.9676 kg

DRUGS (1)
  1. SULFAMETHOXAZOLE AND TRIMETHOPRIM [Suspect]
     Indication: URINARY TRACT INFECTION
     Dosage: ONE TABLET TWICE WEEKLY PO
     Route: 048
     Dates: start: 20100513, end: 20100514

REACTIONS (12)
  - ANAPHYLACTIC REACTION [None]
  - DYSPNOEA [None]
  - ERYTHEMA [None]
  - GLOSSODYNIA [None]
  - HEART RATE INCREASED [None]
  - OEDEMA PERIPHERAL [None]
  - PHARYNGEAL OEDEMA [None]
  - PRURITUS [None]
  - SKIN DISCOLOURATION [None]
  - SWOLLEN TONGUE [None]
  - THROAT IRRITATION [None]
  - URTICARIA [None]
